FAERS Safety Report 7484418-9 (Version None)
Quarter: 2011Q2

REPORT INFORMATION
  Report Type: 
  Country: None (occurrence: None)
  Receive Date: 20110517
  Receipt Date: 20110506
  Transmission Date: 20111010
  Serious: Yes (Hospitalization, Other)
  Sender: FDA-Public Use
  Company Number: US-JNJFOC-20110504096

PATIENT
  Sex: Male
  Weight: 69.9 kg

DRUGS (5)
  1. ABIRATERONE ACETATE [Suspect]
     Route: 048
     Dates: start: 20110311, end: 20110504
  2. PREDNISONE [Suspect]
     Indication: PROSTATE CANCER METASTATIC
     Route: 065
     Dates: start: 20110505, end: 20110505
  3. PREDNISONE [Suspect]
     Route: 065
     Dates: start: 20110506
  4. PREDNISONE [Suspect]
     Route: 065
     Dates: start: 20110311, end: 20110504
  5. ABIRATERONE ACETATE [Suspect]
     Indication: PROSTATE CANCER METASTATIC
     Route: 048
     Dates: start: 20110505, end: 20110507

REACTIONS (1)
  - DEHYDRATION [None]
